FAERS Safety Report 8900825 (Version 1)
Quarter: 2012Q4

REPORT INFORMATION
  Report Type: 
  Country: CA (occurrence: CA)
  Receive Date: 20121109
  Receipt Date: 20121109
  Transmission Date: 20130627
  Serious: Yes (Life-Threatening, Hospitalization, Other)
  Sender: FDA-Public Use
  Company Number: PHMT2006CA01867

PATIENT
  Age: 66 None
  Sex: Male

DRUGS (4)
  1. SANDOSTATIN LAR [Suspect]
     Indication: METASTATIC NEOPLASM
     Dosage: 60 mg, QW4
     Route: 030
     Dates: start: 200406
  2. SANDOSTATIN LAR [Suspect]
     Dosage: 60 mg, QMO
     Dates: start: 20060502
  3. CEPHALEXIN [Concomitant]
     Dates: start: 20071214
  4. ANTIBIOTICS [Concomitant]

REACTIONS (16)
  - Campylobacter infection [Recovered/Resolved]
  - Syncope [Recovered/Resolved]
  - Hypotension [Recovered/Resolved]
  - Diarrhoea [Recovered/Resolved]
  - Dehydration [Unknown]
  - Blood pressure immeasurable [Recovered/Resolved]
  - Cold sweat [Unknown]
  - Metastases to liver [Unknown]
  - Metastases to abdominal wall [Unknown]
  - Abdominal pain upper [Unknown]
  - Tremor [Unknown]
  - Blood pressure increased [Unknown]
  - Back pain [Recovered/Resolved]
  - Asthenia [Not Recovered/Not Resolved]
  - Nausea [Not Recovered/Not Resolved]
  - Injection site pain [Unknown]
